FAERS Safety Report 4823775-6 (Version None)
Quarter: 2005Q4

REPORT INFORMATION
  Report Type: 
  Country: None (occurrence: None)
  Receive Date: 20051107
  Receipt Date: 20051027
  Transmission Date: 20060501
  Serious: Yes (Hospitalization, Other)
  Sender: FDA-Public Use
  Company Number: 2005148919

PATIENT
  Age: 76 Year
  Sex: Female
  Weight: 72.5755 kg

DRUGS (4)
  1. NORVASC [Suspect]
     Indication: HYPERTENSION
     Dosage: 10 MG (10 MG, 1 IN 1 D)
  2. COREG [Suspect]
     Indication: HYPERTENSION
  3. LOPRESSOR [Concomitant]
  4. CAPOTEN [Concomitant]

REACTIONS (3)
  - BLOOD CALCIUM INCREASED [None]
  - MENTAL DISORDER [None]
  - PARATHYROID TUMOUR [None]
